FAERS Safety Report 19731310 (Version 2)
Quarter: 2021Q3

REPORT INFORMATION
  Report Type: Spontaneous
  Country: GB (occurrence: GB)
  Receive Date: 20210820
  Receipt Date: 20210820
  Transmission Date: 20211014
  Serious: Yes (Other)
  Sender: FDA-Public Use
  Company Number: GB-JAZZ-2021-GB-003446

PATIENT
  Age: 66 Year
  Sex: Male

DRUGS (2)
  1. VYXEOS [Suspect]
     Active Substance: CYTARABINE\DAUNORUBICIN
     Dosage: CYCLE 2 INDUCTION
  2. VYXEOS [Suspect]
     Active Substance: CYTARABINE\DAUNORUBICIN
     Indication: ACUTE MYELOID LEUKAEMIA
     Dosage: CYCLE 1 OF INDUCTION VYXEOS

REACTIONS (3)
  - Neutropenic sepsis [Unknown]
  - Cytopenia [Unknown]
  - Liver abscess [Unknown]
